FAERS Safety Report 19058519 (Version 3)
Quarter: 2021Q2

REPORT INFORMATION
  Report Type: Spontaneous
  Country: JP (occurrence: JP)
  Receive Date: 20210325
  Receipt Date: 20210524
  Transmission Date: 20210717
  Serious: Yes (Death, Life-Threatening, Hospitalization, Other)
  Sender: FDA-Public Use
  Company Number: JP-SA-2021SA100283

PATIENT
  Age: 84 Year
  Sex: Male
  Weight: 55 kg

DRUGS (12)
  1. TS?1 [Suspect]
     Active Substance: GIMERACIL\OTERACIL\TEGAFUR
     Indication: GASTRIC CANCER
     Dosage: 40 MG, Q12H
     Route: 048
     Dates: start: 20200903, end: 20201015
  2. TS?1 [Suspect]
     Active Substance: GIMERACIL\OTERACIL\TEGAFUR
     Dosage: UNK
     Dates: start: 20201105
  3. ELPLAT [Suspect]
     Active Substance: OXALIPLATIN
     Indication: GASTRIC CANCER
     Dosage: 155 MG, Q3W
     Route: 041
     Dates: start: 20200903, end: 20201015
  4. FEBURIC [Concomitant]
     Active Substance: FEBUXOSTAT
  5. MAGNESIUM OXIDE. [Concomitant]
     Active Substance: MAGNESIUM OXIDE
     Route: 048
  6. EURODIN [ESTAZOLAM] [Concomitant]
     Active Substance: ESTAZOLAM
     Route: 048
  7. TAKECAB [Concomitant]
     Active Substance: VONOPRAZAN FUMARATE
     Route: 065
  8. TARLIGE [Concomitant]
     Active Substance: MIROGABALIN BESYLATE
     Route: 065
  9. ELPLAT [Suspect]
     Active Substance: OXALIPLATIN
     Dosage: UNK
     Dates: start: 20210128, end: 20210128
  10. RENIVACE [Concomitant]
     Active Substance: ENALAPRIL
  11. ELPLAT [Suspect]
     Active Substance: OXALIPLATIN
     Dosage: UNK
     Dates: start: 20201105
  12. NORVASC [Concomitant]
     Active Substance: AMLODIPINE BESYLATE

REACTIONS (5)
  - Pneumothorax [Unknown]
  - Acute kidney injury [Unknown]
  - Disseminated intravascular coagulation [Unknown]
  - Palmar-plantar erythrodysaesthesia syndrome [Unknown]
  - Interstitial lung disease [Fatal]

NARRATIVE: CASE EVENT DATE: 20201015
